FAERS Safety Report 14274986 (Version 2)
Quarter: 2018Q3

REPORT INFORMATION
  Report Type: Spontaneous
  Country: JP (occurrence: JP)
  Receive Date: 20171211
  Receipt Date: 20180809
  Transmission Date: 20181010
  Serious: Yes (Hospitalization)
  Sender: FDA-Public Use
  Company Number: JP-OTSUKA-010484

PATIENT
  Age: 29 Year
  Sex: Female
  Weight: 49 kg

DRUGS (4)
  1. UTEMERIN [Concomitant]
     Active Substance: RITODRINE
     Indication: PROPHYLAXIS
     Dosage: 20 MG, QD
     Route: 048
     Dates: start: 20100922, end: 201010
  2. ABILIFY [Suspect]
     Active Substance: ARIPIPRAZOLE
     Indication: SCHIZOPHRENIA
     Dosage: 12 MG, QD
     Route: 048
     Dates: start: 20090610, end: 20101124
  3. ABILIFY [Suspect]
     Active Substance: ARIPIPRAZOLE
     Indication: SCHIZOPHRENIA
     Dosage: 30 MG, QD
     Route: 048
     Dates: start: 20101129
  4. TOKISYAKUYAKUSAN [Concomitant]
     Indication: COMPLICATION OF PREGNANCY
     Dosage: 7.5 G, QD
     Route: 048
     Dates: start: 20100922, end: 201010

REACTIONS (3)
  - Breast feeding [Unknown]
  - Schizophrenia [Not Recovered/Not Resolved]
  - Maternal exposure during pregnancy [Unknown]

NARRATIVE: CASE EVENT DATE: 20101116
